FAERS Safety Report 4355090-1 (Version None)
Quarter: 2004Q2

REPORT INFORMATION
  Report Type: 
  Country: None (occurrence: None)
  Receive Date: 20040504
  Receipt Date: 20040428
  Transmission Date: 20050107
  Serious: Yes (Hospitalization, Disabling)
  Sender: FDA-Public Use
  Company Number: 200411417GDS

PATIENT
  Age: 29 Year
  Sex: Female
  Weight: 55 kg

DRUGS (3)
  1. AVELOX [Suspect]
     Indication: TRACHEOBRONCHITIS
     Dosage: 400 MG, TOTAL DAILY, ORAL
     Route: 048
     Dates: start: 20040126
  2. LYSOMUCIL [Concomitant]
  3. RHINATHIOL [Concomitant]

REACTIONS (1)
  - GASTROINTESTINAL DISORDER [None]
